FAERS Safety Report 9157071 (Version 1)
Quarter: 2013Q1

REPORT INFORMATION
  Report Type: Spontaneous
  Country: CA (occurrence: None)
  Receive Date: 20130206
  Receipt Date: 20130206
  Transmission Date: 20140127
  Serious: Yes (Other)
  Sender: FDA-Public Use
  Company Number: IMP_06316_2013

PATIENT
  Age: 47 Year
  Sex: Female

DRUGS (1)
  1. CHLOROQUINE [Suspect]
     Indication: SYSTEMIC LUPUS ERYTHEMATOSUS

REACTIONS (5)
  - Weight decreased [None]
  - Keratopathy [None]
  - Retinal toxicity [None]
  - Visual field defect [None]
  - Retinal disorder [None]
